FAERS Safety Report 18995597 (Version 1)
Quarter: 2021Q1

REPORT INFORMATION
  Report Type: Spontaneous
  Country: GB (occurrence: GB)
  Receive Date: 20210310
  Receipt Date: 20210310
  Transmission Date: 20210420
  Serious: Yes (Other)
  Sender: FDA-Public Use
  Company Number: GB-AUROBINDO-AUR-APL-2021-006717

PATIENT
  Age: 31 Year
  Sex: Male
  Weight: 88 kg

DRUGS (2)
  1. FINASTERIDE. [Suspect]
     Active Substance: FINASTERIDE
     Indication: ILL-DEFINED DISORDER
     Dosage: 1 MILLIGRAM
     Route: 048
     Dates: start: 20210115, end: 20210205
  2. FINASTERIDE. [Suspect]
     Active Substance: FINASTERIDE
     Indication: ANDROGENETIC ALOPECIA

REACTIONS (5)
  - Breast mass [Not Recovered/Not Resolved]
  - Breast discomfort [Recovered/Resolved]
  - Nipple enlargement [Unknown]
  - Hyperaesthesia [Recovered/Resolved]
  - Breast swelling [Not Recovered/Not Resolved]

NARRATIVE: CASE EVENT DATE: 20210131
